FAERS Safety Report 18152996 (Version 1)
Quarter: 2020Q3

REPORT INFORMATION
  Report Type: Spontaneous
  Country: US (occurrence: US)
  Receive Date: 20200814
  Receipt Date: 20200814
  Transmission Date: 20201103
  Serious: No
  Sender: FDA-Public Use
  Company Number: US-009507513-2008USA008323

PATIENT
  Sex: Female
  Weight: 61.22 kg

DRUGS (2)
  1. LENVATINIB MESYLATE [Suspect]
     Active Substance: LENVATINIB MESYLATE
     Indication: ENDOMETRIAL CANCER
     Dosage: 20 MG DAILY
     Route: 048
     Dates: start: 20200603
  2. KEYTRUDA [Suspect]
     Active Substance: PEMBROLIZUMAB
     Dosage: UNK

REACTIONS (8)
  - Stomatitis [Recovered/Resolved]
  - Proteinuria [Unknown]
  - Blood urine present [Unknown]
  - Stomatitis [Unknown]
  - Haemoglobin abnormal [Unknown]
  - Low density lipoprotein increased [Unknown]
  - Anaemia [Recovered/Resolved]
  - Thyroid hormones increased [Unknown]

NARRATIVE: CASE EVENT DATE: 2020
